FAERS Safety Report 11346962 (Version 1)
Quarter: 2015Q3

REPORT INFORMATION
  Report Type: Spontaneous
  Country: AU (occurrence: AU)
  Receive Date: 20150806
  Receipt Date: 20150806
  Transmission Date: 20151125
  Serious: Yes (Other)
  Sender: FDA-Public Use
  Company Number: AU-BAYER-2015-222774

PATIENT
  Age: 34 Year
  Sex: Female

DRUGS (1)
  1. MIRENA [Suspect]
     Active Substance: LEVONORGESTREL
     Dosage: 24 MCG/24HR, CONT
     Route: 015
     Dates: start: 201412, end: 201505

REACTIONS (2)
  - Uterine perforation [None]
  - Device breakage [None]

NARRATIVE: CASE EVENT DATE: 201505
